FAERS Safety Report 14406183 (Version 2)
Quarter: 2018Q2

REPORT INFORMATION
  Report Type: Spontaneous
  Country: US (occurrence: US)
  Receive Date: 20180118
  Receipt Date: 20180508
  Transmission Date: 20180711
  Serious: No
  Sender: FDA-Public Use
  Company Number: US-PFIZER INC-2018022473

PATIENT
  Age: 53 Year
  Sex: Female

DRUGS (2)
  1. IBRANCE [Suspect]
     Active Substance: PALBOCICLIB
     Indication: BREAST CANCER FEMALE
     Dosage: 125 MG, DAILY
     Route: 048
  2. IBRANCE [Suspect]
     Active Substance: PALBOCICLIB
     Dosage: 125 MG, CYCLIC (125 MG PO QD X 21 DAYS, 7 DAY OFF)
     Route: 048
     Dates: start: 20180116

REACTIONS (3)
  - Weight increased [Unknown]
  - Neoplasm progression [Unknown]
  - Initial insomnia [Unknown]

NARRATIVE: CASE EVENT DATE: 20180116
